FAERS Safety Report 4920806-X (Version None)
Quarter: 2006Q1

REPORT INFORMATION
  Report Type: 
  Country: None (occurrence: None)
  Receive Date: 20060217
  Receipt Date: 20040513
  Transmission Date: 20060701
  Serious: No
  Sender: FDA-Public Use
  Company Number: 04-000139

PATIENT
  Age: 61 Year
  Sex: Female
  Weight: 70.7 kg

DRUGS (5)
  1. FEMRING [Suspect]
     Indication: MENOPAUSAL SYMPTOMS
     Dosage: 0.05 MG, QD, VAGINAL
     Route: 067
     Dates: start: 20030606, end: 20040308
  2. LIPITOR [Concomitant]
  3. PREMARIN [Concomitant]
  4. CALCIUM (CALCIUM) [Concomitant]
  5. ACTONEL [Concomitant]

REACTIONS (7)
  - DYSPAREUNIA [None]
  - HYPERKERATOSIS [None]
  - MEDICAL DEVICE COMPLICATION [None]
  - POST PROCEDURAL COMPLICATION [None]
  - RECTOCELE [None]
  - VAGINAL DISORDER [None]
  - VAGINAL INFECTION [None]
